FAERS Safety Report 23609956 (Version 1)
Quarter: 2024Q1

REPORT INFORMATION
  Report Type: Spontaneous
  Country: CA (occurrence: CA)
  Receive Date: 20240308
  Receipt Date: 20240308
  Transmission Date: 20240410
  Serious: Yes (Death, Other)
  Sender: FDA-Public Use
  Company Number: CA-JNJFOC-20240311192

PATIENT
  Age: 70 Year
  Sex: Female
  Weight: 31 kg

DRUGS (4)
  1. UPTRAVI [Suspect]
     Active Substance: SELEXIPAG
     Indication: Product used for unknown indication
     Route: 048
  2. ADCIRCA [Suspect]
     Active Substance: TADALAFIL
     Indication: Pulmonary arterial hypertension
     Route: 065
  3. AMBRISENTAN [Suspect]
     Active Substance: AMBRISENTAN
     Indication: Pulmonary arterial hypertension
     Route: 048
  4. AMBRISENTAN [Suspect]
     Active Substance: AMBRISENTAN
     Route: 065

REACTIONS (9)
  - Death [Fatal]
  - Abdominal pain upper [Fatal]
  - Asthenia [Fatal]
  - Diarrhoea [Fatal]
  - Faeces soft [Fatal]
  - Feeling hot [Fatal]
  - Headache [Fatal]
  - Malaise [Fatal]
  - Pain [Fatal]
